FAERS Safety Report 4898440-X (Version None)
Quarter: 2006Q1

REPORT INFORMATION
  Report Type: 
  Country: None (occurrence: None)
  Receive Date: 20060131
  Receipt Date: 20060131
  Transmission Date: 20060701
  Serious: Yes (Other)
  Sender: FDA-Public Use
  Company Number: None

PATIENT
  Sex: Female
  Weight: 68.0396 kg

DRUGS (1)
  1. FENTANYL 25 MCG MYLAN PHARMACEUTICALS [Suspect]
     Indication: OSTEOARTHRITIS
     Dosage: 25 MCG 1 PATCH Q '72 HRS TRANSDERMAL
     Route: 062
     Dates: start: 20050217, end: 20050227

REACTIONS (2)
  - DRUG INEFFECTIVE [None]
  - THERAPEUTIC RESPONSE UNEXPECTED WITH DRUG SUBSTITUTION [None]
